FAERS Safety Report 8183220-2 (Version None)
Quarter: 2012Q1

REPORT INFORMATION
  Report Type: 
  Country: None (occurrence: None)
  Receive Date: 20120127
  Receipt Date: 20110715
  Transmission Date: 20120608
  Serious: Yes (Hospitalization)
  Sender: FDA-Public Use
  Company Number: 1000022215

PATIENT
  Age: 85 Year
  Sex: Female

DRUGS (1)
  1. BYSTOLIC [Suspect]
     Indication: HYPERTENSION
     Dosage: (1 IN 1 D), ORAL
     Route: 048
     Dates: start: 20110601, end: 20110601

REACTIONS (2)
  - FATIGUE [None]
  - BRADYCARDIA [None]
